FAERS Safety Report 8032988-4 (Version None)
Quarter: 2012Q1

REPORT INFORMATION
  Report Type: 
  Country: None (occurrence: None)
  Receive Date: 20120110
  Receipt Date: 20120103
  Transmission Date: 20120608
  Serious: Yes (Other)
  Sender: FDA-Public Use
  Company Number: BE-SANOFI-AVENTIS-2011SA060910

PATIENT
  Age: 45 Year
  Sex: Female

DRUGS (3)
  1. ENOXAPARIN SODIUM [Suspect]
     Route: 058
  2. ENOXAPARIN SODIUM [Suspect]
     Route: 058
  3. ACETAMINOPHEN [Concomitant]

REACTIONS (6)
  - PARAESTHESIA [None]
  - OEDEMA [None]
  - HYPERSENSITIVITY [None]
  - RESPIRATORY DISORDER [None]
  - SWELLING [None]
  - ANGIOEDEMA [None]
